FAERS Safety Report 12045957 (Version 1)
Quarter: 2016Q1

REPORT INFORMATION
  Report Type: Spontaneous
  Country: US (occurrence: US)
  Receive Date: 20160209
  Receipt Date: 20160209
  Transmission Date: 20160526
  Serious: No
  Sender: FDA-Public Use
  Company Number: US-BIOGEN-2016BI00173532

PATIENT
  Sex: Female

DRUGS (1)
  1. TECFIDERA [Suspect]
     Active Substance: DIMETHYL FUMARATE
     Indication: MULTIPLE SCLEROSIS
     Route: 065
     Dates: start: 20151120

REACTIONS (5)
  - Eye inflammation [Unknown]
  - Eye pain [Unknown]
  - Optic neuritis [Not Recovered/Not Resolved]
  - Ocular discomfort [Unknown]
  - Fatigue [Unknown]
